FAERS Safety Report 10525385 (Version 1)
Quarter: 2014Q4

REPORT INFORMATION
  Report Type: Spontaneous
  Country: GR (occurrence: GR)
  Receive Date: 20141017
  Receipt Date: 20141017
  Transmission Date: 20150528
  Serious: Yes (Other)
  Sender: FDA-Public Use
  Company Number: GR-ACTAVIS-2014-22036

PATIENT
  Age: 47 Year
  Sex: Female

DRUGS (6)
  1. QUETIAPINE (UNKNOWN) [Interacting]
     Active Substance: QUETIAPINE
     Indication: BIPOLAR II DISORDER
     Dosage: 150 MG, QHS
     Route: 065
  2. VALPROATE [Concomitant]
     Active Substance: VALPROATE SODIUM
     Indication: BIPOLAR II DISORDER
     Dosage: 1.5 G, DAILY
     Route: 065
  3. VENLAFAXINE HYDROCHLORIDE (UNKNOWN) [Suspect]
     Active Substance: VENLAFAXINE HYDROCHLORIDE
     Indication: BIPOLAR II DISORDER
     Dosage: 300 MG, BID
     Route: 065
  4. VENLAFAXINE HYDROCHLORIDE (UNKNOWN) [Interacting]
     Active Substance: VENLAFAXINE HYDROCHLORIDE
     Dosage: 75 MG, DAILY
     Route: 065
  5. TOPIRAMATE. [Concomitant]
     Active Substance: TOPIRAMATE
     Indication: BIPOLAR II DISORDER
     Dosage: 100 MG, DAILY
     Route: 065
  6. QUETIAPINE (UNKNOWN) [Interacting]
     Active Substance: QUETIAPINE
     Dosage: 100 MG, DAILY
     Route: 065

REACTIONS (2)
  - Restless legs syndrome [Recovered/Resolved]
  - Drug interaction [Unknown]
